FAERS Safety Report 23646710 (Version 1)
Quarter: 2024Q1

REPORT INFORMATION
  Report Type: Spontaneous
  Country: IL (occurrence: IL)
  Receive Date: 20240319
  Receipt Date: 20240319
  Transmission Date: 20240409
  Serious: Yes (Hospitalization)
  Sender: FDA-Public Use
  Company Number: IL-SA-SAC20240315000400

PATIENT
  Age: 41 Year
  Sex: Female

DRUGS (5)
  1. CAMPATH [Suspect]
     Active Substance: ALEMTUZUMAB
     Route: 065
  2. DISEPTYL FORTE [Concomitant]
  3. FLUCONAZOLE [Concomitant]
     Active Substance: FLUCONAZOLE
  4. GABAPENTIN [Concomitant]
     Active Substance: GABAPENTIN
  5. ASPIRIN [Concomitant]
     Active Substance: ASPIRIN

REACTIONS (3)
  - Presyncope [Unknown]
  - Pyrexia [Unknown]
  - Chills [Unknown]
